FAERS Safety Report 5852467-X (Version None)
Quarter: 2008Q3

REPORT INFORMATION
  Report Type: 
  Country: None (occurrence: None)
  Receive Date: 20080820
  Receipt Date: 20080820
  Transmission Date: 20090109
  Serious: No
  Sender: FDA-Public Use
  Company Number: None

PATIENT
  Age: 50 Year
  Sex: Male

DRUGS (1)
  1. TERAZOSIN HCL [Suspect]
     Dosage: 1 CAPSULE DAILY

REACTIONS (5)
  - DRUG INEFFECTIVE [None]
  - MICTURITION URGENCY [None]
  - PHARMACEUTICAL PRODUCT COMPLAINT [None]
  - TERMINAL DRIBBLING [None]
  - URINARY RETENTION [None]
